FAERS Safety Report 11933322 (Version 1)
Quarter: 2016Q1

REPORT INFORMATION
  Report Type: Spontaneous
  Country: US (occurrence: US)
  Receive Date: 20160121
  Receipt Date: 20160121
  Transmission Date: 20160526
  Serious: No
  Sender: FDA-Public Use
  Company Number: US-TEVA-571657USA

PATIENT
  Age: 68 Year
  Sex: Female

DRUGS (1)
  1. HYDROCHLOROTHIAZIDE. [Suspect]
     Active Substance: HYDROCHLOROTHIAZIDE
     Indication: SWELLING
     Dosage: 25 MILLIGRAM DAILY;
     Dates: start: 20150613

REACTIONS (2)
  - Sensation of foreign body [Unknown]
  - Dysuria [Unknown]

NARRATIVE: CASE EVENT DATE: 201506
